FAERS Safety Report 11115440 (Version 1)
Quarter: 2015Q2

REPORT INFORMATION
  Report Type: Spontaneous
  Country: US (occurrence: US)
  Receive Date: 20150515
  Receipt Date: 20150515
  Transmission Date: 20150821
  Serious: No
  Sender: FDA-Public Use
  Company Number: US-BAYER-2015-229193

PATIENT
  Age: 2 Year
  Sex: Male

DRUGS (2)
  1. CLARITIN [Suspect]
     Active Substance: LORATADINE
     Dosage: 1 DF, ONCE
     Dates: start: 20150512, end: 20150512
  2. ZYRTEC [Concomitant]
     Active Substance: CETIRIZINE HYDROCHLORIDE
     Dosage: UNK

REACTIONS (2)
  - Accidental exposure to product by child [None]
  - Psychomotor hyperactivity [Unknown]

NARRATIVE: CASE EVENT DATE: 20150512
